FAERS Safety Report 6159582-4 (Version None)
Quarter: 2009Q2

REPORT INFORMATION
  Report Type: 
  Country: None (occurrence: None)
  Receive Date: 20090415
  Receipt Date: 20090415
  Transmission Date: 20091009
  Serious: Yes (Other)
  Sender: FDA-Public Use
  Company Number: None

PATIENT
  Sex: Male
  Weight: 55.3388 kg

DRUGS (1)
  1. RISPERDAL [Suspect]
     Dosage: 2MG ONCE A DAY ORAL
     Route: 048
     Dates: start: 20080108, end: 20090212

REACTIONS (3)
  - PRODUCT SUBSTITUTION ISSUE [None]
  - PRURITUS [None]
  - SWELLING FACE [None]
